FAERS Safety Report 25021521 (Version 1)
Quarter: 2025Q1

REPORT INFORMATION
  Report Type: Spontaneous
  Country: CN (occurrence: CN)
  Receive Date: 20250228
  Receipt Date: 20250228
  Transmission Date: 20250409
  Serious: Yes (Other)
  Sender: BOEHRINGER INGELHEIM
  Company Number: CN-BoehringerIngelheim-2025-BI-011170

PATIENT
  Age: 74 Year
  Sex: Male
  Weight: 55.000 kg

DRUGS (4)
  1. COMBIVENT [Suspect]
     Active Substance: ALBUTEROL SULFATE\IPRATROPIUM BROMIDE
     Indication: Chronic obstructive pulmonary disease
     Dates: start: 20250217, end: 20250217
  2. COMBIVENT [Suspect]
     Active Substance: ALBUTEROL SULFATE\IPRATROPIUM BROMIDE
     Indication: Lower respiratory tract infection
  3. BUDESONIDE [Suspect]
     Active Substance: BUDESONIDE
     Indication: Chronic obstructive pulmonary disease
     Dates: start: 20250217, end: 20250217
  4. BUDESONIDE [Suspect]
     Active Substance: BUDESONIDE
     Indication: Lower respiratory tract infection

REACTIONS (7)
  - Electrocardiogram T wave peaked [Recovered/Resolved]
  - Sinus tachycardia [Recovered/Resolved]
  - QRS axis abnormal [Recovered/Resolved]
  - Bundle branch block left [Recovered/Resolved]
  - Palpitations [Recovered/Resolved]
  - Headache [Recovered/Resolved]
  - Dizziness [Recovered/Resolved]

NARRATIVE: CASE EVENT DATE: 20250217
